FAERS Safety Report 8517753-3 (Version None)
Quarter: 2012Q3

REPORT INFORMATION
  Report Type: 
  Country: None (occurrence: None)
  Receive Date: 20120718
  Receipt Date: 20120712
  Transmission Date: 20120928
  Serious: Yes (Hospitalization)
  Sender: FDA-Public Use
  Company Number: US-BAYER-2012-038329

PATIENT
  Age: 52 Year
  Sex: Female
  Weight: 51.247 kg

DRUGS (4)
  1. NEXIUM [Concomitant]
     Indication: GASTRIC PH DECREASED
     Dosage: DAILY DOSE 40 MG
     Dates: start: 20070101
  2. MIRENA [Suspect]
     Indication: MENORRHAGIA
     Dosage: 20 ?G/D, CONT
     Route: 015
     Dates: start: 20120227
  3. MULTIPLE VITAMINS [Concomitant]
     Dosage: DAILY DOSE 2 DF
  4. FERROUS SULFATE TAB [Concomitant]
     Indication: BLOOD IRON DECREASED
     Dosage: DAILY DOSE 65 MG

REACTIONS (9)
  - ALOPECIA [None]
  - MENORRHAGIA [None]
  - WEIGHT INCREASED [None]
  - BREAST PAIN [None]
  - ACNE [None]
  - ASTHENIA [None]
  - UTERINE PAIN [None]
  - DEVICE EXPULSION [None]
  - DISCOMFORT [None]
